FAERS Safety Report 24552067 (Version 1)
Quarter: 2024Q4

REPORT INFORMATION
  Report Type: Spontaneous
  Country: US (occurrence: US)
  Receive Date: 20241026
  Receipt Date: 20241026
  Transmission Date: 20250114
  Serious: No
  Sender: GLAXOSMITHKLINE
  Company Number: US-GSKCCFUS-Case-02130149_AE-117472

PATIENT
  Age: 68 Year
  Sex: Female

DRUGS (1)
  1. JEMPERLI [Suspect]
     Active Substance: DOSTARLIMAB\DOSTARLIMAB-GXLY
     Indication: Product used for unknown indication
     Dosage: UNK,SINGLE DOSE VIAL, 500 MG WITH THE CP AND 8 CYCLES 1000 MG

REACTIONS (1)
  - Arthralgia [Unknown]
